FAERS Safety Report 6873950-4 (Version None)
Quarter: 2010Q3

REPORT INFORMATION
  Report Type: 
  Country: None (occurrence: None)
  Receive Date: 20100723
  Receipt Date: 20090413
  Transmission Date: 20110219
  Serious: No
  Sender: FDA-Public Use
  Company Number: US-PFIZER INC-2009197453

PATIENT
  Sex: Female
  Weight: 60.771 kg

DRUGS (5)
  1. CHANTIX [Suspect]
     Indication: SMOKING CESSATION THERAPY
     Dosage: 0.5 MG, 1X/DAY
     Route: 048
     Dates: start: 20090301
  2. SYNTHROID [Concomitant]
     Dosage: UNK
  3. FAMOTIDINE [Concomitant]
     Dosage: UNK
  4. EFFEXOR [Concomitant]
     Dosage: UNK
  5. CELEBREX [Concomitant]
     Dosage: UNK

REACTIONS (2)
  - DIZZINESS [None]
  - NAUSEA [None]
